FAERS Safety Report 18602778 (Version 3)
Quarter: 2021Q1

REPORT INFORMATION
  Report Type: Spontaneous
  Country: US (occurrence: US)
  Receive Date: 20201210
  Receipt Date: 20210322
  Transmission Date: 20210419
  Serious: Yes (Other)
  Sender: FDA-Public Use
  Company Number: US-BAYER-2020-267944

PATIENT
  Age: 38 Year
  Sex: Female
  Weight: 68.49 kg

DRUGS (2)
  1. MIRENA [Suspect]
     Active Substance: LEVONORGESTREL
     Indication: CONTRACEPTION
     Dosage: 20 ?G PER DAY CONTINUOUSLY
     Route: 015
     Dates: start: 20191019, end: 20201118
  2. MIRENA [Suspect]
     Active Substance: LEVONORGESTREL
     Indication: CONTRACEPTION
     Dosage: 20 ?G PER DAY CONTINUOUSLY
     Route: 015
     Dates: start: 20201118

REACTIONS (5)
  - Genital haemorrhage [Recovered/Resolved]
  - Embedded device [Recovered/Resolved]
  - Abdominal pain [Recovered/Resolved]
  - Device dislocation [Not Recovered/Not Resolved]
  - Dyspareunia [Recovered/Resolved]

NARRATIVE: CASE EVENT DATE: 2020
